FAERS Safety Report 4689521-4 (Version None)
Quarter: 2005Q2

REPORT INFORMATION
  Report Type: 
  Country: None (occurrence: None)
  Receive Date: 20050613
  Receipt Date: 20050613
  Transmission Date: 20051028
  Serious: No
  Sender: FDA-Public Use
  Company Number: None

PATIENT
  Age: 52 Year
  Sex: Female

DRUGS (2)
  1. MERIDIA [Suspect]
     Indication: OBESITY
     Dosage: ORALLY
     Route: 048
  2. CELEXA [Concomitant]

REACTIONS (1)
  - MYOCARDIAL INFARCTION [None]
